FAERS Safety Report 7556285-6 (Version None)
Quarter: 2011Q2

REPORT INFORMATION
  Report Type: 
  Country: None (occurrence: None)
  Receive Date: 20110620
  Receipt Date: 20110617
  Transmission Date: 20111010
  Serious: No
  Sender: FDA-Public Use
  Company Number: US-PFIZER INC-2011134241

PATIENT
  Sex: Female
  Weight: 55.3 kg

DRUGS (8)
  1. LISINOPRIL [Concomitant]
     Indication: HYPERTENSION
     Dosage: 10 MG, DAILY
  2. XANAX [Concomitant]
     Indication: INSOMNIA
     Dosage: UNK
  3. COLESTID [Concomitant]
     Indication: DIARRHOEA
     Dosage: UNK, DAILY
  4. PRAVASTATIN [Concomitant]
     Indication: BLOOD CHOLESTEROL INCREASED
     Dosage: 40 MG, DAILY
  5. MULTI-VITAMINS [Concomitant]
     Dosage: UNK
  6. CELEBREX [Suspect]
     Indication: ARTHRITIS
     Dosage: 200 MG, DAILY
     Route: 048
     Dates: start: 20110501
  7. PRILOSEC [Concomitant]
     Dosage: 20 MG, DAILY
  8. IMURAN [Concomitant]
     Dosage: 75 MG, DAILY

REACTIONS (1)
  - HAIR COLOUR CHANGES [None]
